FAERS Safety Report 10269647 (Version 1)
Quarter: 2014Q2

REPORT INFORMATION
  Report Type: Spontaneous
  Country: US (occurrence: None)
  Receive Date: 20140626
  Receipt Date: 20140626
  Transmission Date: 20141212
  Serious: No
  Sender: FDA-Public Use
  Company Number: None

PATIENT
  Age: 47 Year
  Sex: Female
  Weight: 58.97 kg

DRUGS (2)
  1. DULOXETINE HYDROCHLORIDE 30 MG [Suspect]
     Indication: DEPRESSION
     Dosage: 1 DOSE ONCE DAILY TAKEN BY MOUTH
     Route: 048
     Dates: start: 20140415, end: 20140625
  2. DULOXETINE HYDROCHLORIDE 30 MG [Suspect]
     Indication: ANXIETY
     Dosage: 1 DOSE ONCE DAILY TAKEN BY MOUTH
     Route: 048
     Dates: start: 20140415, end: 20140625

REACTIONS (7)
  - Depression [None]
  - Insomnia [None]
  - Muscle twitching [None]
  - Anxiety [None]
  - Emotional poverty [None]
  - Drug effect decreased [None]
  - Product substitution issue [None]
